FAERS Safety Report 10884242 (Version 1)
Quarter: 2015Q1

REPORT INFORMATION
  Report Type: Spontaneous
  Country: US (occurrence: None)
  Receive Date: 20150227
  Receipt Date: 20150227
  Transmission Date: 20150721
  Serious: Yes (Death)
  Sender: FDA-Public Use
  Company Number: US-H14001-15-00285

PATIENT
  Age: 59 Year
  Sex: Female

DRUGS (2)
  1. ISONIAZID (ISONIAZID) (UNKNOWN) (ISONIAZID) [Suspect]
     Active Substance: ISONIAZID
     Indication: LATENT TUBERCULOSIS
  2. TYLENOL [Concomitant]
     Active Substance: ACETAMINOPHEN

REACTIONS (3)
  - Non-alcoholic steatohepatitis [None]
  - Drug-induced liver injury [None]
  - Hepatic necrosis [None]
